FAERS Safety Report 19987508 (Version 1)
Quarter: 2021Q4

REPORT INFORMATION
  Report Type: Report from Study
  Country: IT (occurrence: IT)
  Receive Date: 20211022
  Receipt Date: 20211022
  Transmission Date: 20220303
  Serious: Yes (Hospitalization, Other)
  Sender: FDA-Public Use
  Company Number: None

PATIENT
  Age: 77 Year
  Sex: Male

DRUGS (6)
  1. ENALAPRIL MALEATE [Suspect]
     Active Substance: ENALAPRIL MALEATE
     Indication: Hypertension
     Dosage: 25 MILLIGRAM, QD
     Dates: start: 20210101, end: 20210914
  2. SIMVASTATIN [Suspect]
     Active Substance: SIMVASTATIN
     Dosage: 20 MILLIGRAM, QD
     Dates: start: 20210101, end: 20210914
  3. CARVEDILOL [Suspect]
     Active Substance: CARVEDILOL
     Dosage: 12.5 MILLIGRAM, QD
     Dates: start: 20210101, end: 20210914
  4. LASIX [Suspect]
     Active Substance: FUROSEMIDE
     Dosage: 2 DOSAGE FORM, QD
     Dates: start: 20210101, end: 20210914
  5. ASPIRIN [Concomitant]
     Active Substance: ASPIRIN
     Dosage: UNK
  6. CANRENOATE POTASSIUM [Concomitant]
     Active Substance: CANRENOATE POTASSIUM

REACTIONS (1)
  - Renal failure [Not Recovered/Not Resolved]

NARRATIVE: CASE EVENT DATE: 20210914
